FAERS Safety Report 4687854-9 (Version None)
Quarter: 2005Q2

REPORT INFORMATION
  Report Type: 
  Country: None (occurrence: None)
  Receive Date: 20050610
  Receipt Date: 20050601
  Transmission Date: 20051028
  Serious: Yes (Hospitalization, Other)
  Sender: FDA-Public Use
  Company Number: US-JNJFOC-20050206388

PATIENT
  Sex: Female
  Weight: 33.57 kg

DRUGS (7)
  1. TOPAMAX [Suspect]
     Route: 049
  2. TOPAMAX [Suspect]
     Route: 049
  3. TOPAMAX [Suspect]
     Route: 049
  4. TOPAMAX [Suspect]
     Route: 049
  5. TOPAMAX [Suspect]
     Indication: MIGRAINE PROPHYLAXIS
     Dosage: 25 MG IN AM AND 50 MG IN PM
     Route: 049
  6. DEPAKOTE [Suspect]
     Dosage: ^IV LOAD IN ER^
     Route: 065
  7. DEPAKOTE [Suspect]
     Indication: HEADACHE
     Dosage: ^AFTER IV LOAD IN ER^
     Route: 065

REACTIONS (5)
  - ANTICONVULSANT TOXICITY [None]
  - COORDINATION ABNORMAL [None]
  - ENCEPHALOPATHY [None]
  - HALLUCINATION [None]
  - RASH MACULAR [None]
